FAERS Safety Report 9411564 (Version 1)
Quarter: 2013Q3

REPORT INFORMATION
  Report Type: Spontaneous
  Country: US (occurrence: None)
  Receive Date: 20130718
  Receipt Date: 20130718
  Transmission Date: 20140515
  Serious: Yes (Hospitalization)
  Sender: FDA-Public Use
  Company Number: None

PATIENT
  Age: 74 Year
  Sex: Female
  Weight: 47.63 kg

DRUGS (1)
  1. CLINDAMYCIN [Suspect]
     Indication: TOOTH INFECTION
     Dates: start: 20130413, end: 20130506

REACTIONS (5)
  - Gastric disorder [None]
  - Tooth crowding [None]
  - Faeces discoloured [None]
  - Aphagia [None]
  - Weight decreased [None]
